FAERS Safety Report 8254878-4 (Version None)
Quarter: 2012Q1

REPORT INFORMATION
  Report Type: 
  Country: None (occurrence: None)
  Receive Date: 20120322
  Receipt Date: 20120131
  Transmission Date: 20120608
  Serious: Yes (Hospitalization)
  Sender: FDA-Public Use
  Company Number: UTC-014637

PATIENT
  Age: 63 Year
  Sex: Male
  Weight: 134 kg

DRUGS (5)
  1. PLAVIX [Concomitant]
  2. LETAIRIS [Concomitant]
  3. COUMADIN [Concomitant]
  4. TYVASO [Suspect]
     Indication: PULMONARY HYPERTENSION
     Dosage: 144 MCG (36 MCG, 4 IN 1 D), INHALATION
     Route: 055
     Dates: start: 20100323
  5. DIURETICS (DIURETICS) [Concomitant]

REACTIONS (2)
  - CHEST PAIN [None]
  - DYSPEPSIA [None]
